FAERS Safety Report 12517054 (Version 4)
Quarter: 2016Q4

REPORT INFORMATION
  Report Type: Report from Study
  Country: US (occurrence: US)
  Receive Date: 20160630
  Receipt Date: 20161003
  Transmission Date: 20170207
  Serious: Yes (Hospitalization)
  Sender: FDA-Public Use
  Company Number: US-ACTELION-A-NJ2016-138415

PATIENT
  Age: 52 Year
  Sex: Female
  Weight: 101.59 kg

DRUGS (2)
  1. ADCIRCA [Concomitant]
     Active Substance: TADALAFIL
  2. OPSUMIT [Suspect]
     Active Substance: MACITENTAN
     Indication: PULMONARY HYPERTENSION
     Dosage: 10 MG, QD
     Route: 048
     Dates: start: 20160602

REACTIONS (10)
  - Weight decreased [Unknown]
  - Alopecia [Unknown]
  - Influenza [Unknown]
  - Hepatic pain [Unknown]
  - Rash erythematous [Unknown]
  - Arthropod bite [Unknown]
  - Feeling abnormal [Unknown]
  - Fluid retention [Unknown]
  - Peripheral swelling [Unknown]
  - Oedema peripheral [Unknown]
